FAERS Safety Report 5084332-2 (Version None)
Quarter: 2006Q3

REPORT INFORMATION
  Report Type: 
  Country: None (occurrence: None)
  Receive Date: 20060817
  Receipt Date: 20060817
  Transmission Date: 20061208
  Serious: Yes (Life-Threatening, Other)
  Sender: FDA-Public Use
  Company Number: None

PATIENT
  Age: 23 Year
  Sex: Female
  Weight: 61.6892 kg

DRUGS (4)
  1. ZOLOFT [Suspect]
     Indication: ANXIETY DISORDER
     Dosage: 10 MG EVERY DAY PO
     Route: 048
  2. ZOLOFT [Suspect]
     Indication: PANIC DISORDER
     Dosage: 10 MG EVERY DAY PO
     Route: 048
  3. PROZAC [Suspect]
     Indication: ANXIETY DISORDER
     Dosage: 10 MG EVERY DAY PO
     Route: 048
  4. PROZAC [Suspect]
     Indication: PANIC DISORDER
     Dosage: 10 MG EVERY DAY PO
     Route: 048

REACTIONS (5)
  - DEPRESSION [None]
  - IRRITABILITY [None]
  - MANIA [None]
  - PSYCHIATRIC SYMPTOM [None]
  - SUICIDAL IDEATION [None]
